FAERS Safety Report 10945020 (Version 2)
Quarter: 2015Q2

REPORT INFORMATION
  Report Type: Spontaneous
  Country: FR (occurrence: FR)
  Receive Date: 20150323
  Receipt Date: 20150403
  Transmission Date: 20150821
  Serious: Yes (Hospitalization)
  Sender: FDA-Public Use
  Company Number: FR-009507513-1503FRA007073

PATIENT
  Age: 79 Year
  Sex: Male

DRUGS (12)
  1. LEPONEX [Interacting]
     Active Substance: CLOZAPINE
     Indication: HALLUCINATION
     Dosage: 1 DF(IN EVENING) AND 0.25 TABLET (IN THE MORNING)
     Route: 048
  2. APROVEL [Interacting]
     Active Substance: IRBESARTAN
     Dosage: 1 DF, QD
     Route: 048
     Dates: end: 20141222
  3. EXELON [Interacting]
     Active Substance: RIVASTIGMINE TARTRATE
     Indication: HALLUCINATION
     Dosage: 1 DF, QD (STRENGTH: 4.6 MG/24HRS)
     Route: 062
     Dates: start: 20141213
  4. LEPONEX [Interacting]
     Active Substance: CLOZAPINE
     Dosage: 0.75 MG, QD
     Route: 048
     Dates: start: 20141224
  5. APOMORPHINE HYDROCHLORIDE [Interacting]
     Active Substance: APOMORPHINE HYDROCHLORIDE
     Indication: DYSKINESIA
     Dosage: 1 MG/HR
     Route: 058
     Dates: start: 20141205, end: 20141213
  6. LEPONEX [Interacting]
     Active Substance: CLOZAPINE
     Dosage: 1 DF, QPM
     Route: 048
     Dates: end: 20141223
  7. APOMORPHINE HYDROCHLORIDE [Interacting]
     Active Substance: APOMORPHINE HYDROCHLORIDE
     Dosage: 1.7 MG/HR
     Route: 058
     Dates: start: 20141220, end: 20141222
  8. SINEMET [Suspect]
     Active Substance: CARBIDOPA\LEVODOPA
     Indication: PARKINSONISM
     Dosage: 100MG/10MG
     Route: 048
     Dates: end: 20141210
  9. SINEMET [Interacting]
     Active Substance: CARBIDOPA\LEVODOPA
     Dosage: 100MG/10MG
     Dates: start: 20141213
  10. APOMORPHINE HYDROCHLORIDE [Interacting]
     Active Substance: APOMORPHINE HYDROCHLORIDE
     Dosage: 1 MG/HR
     Route: 058
     Dates: start: 20141215, end: 20141218
  11. APOMORPHINE HYDROCHLORIDE [Interacting]
     Active Substance: APOMORPHINE HYDROCHLORIDE
     Dosage: 1.5 MG/HR
     Route: 058
     Dates: start: 20141219, end: 20141219
  12. APOMORPHINE HYDROCHLORIDE [Interacting]
     Active Substance: APOMORPHINE HYDROCHLORIDE
     Dosage: 1.5 MG/HR
     Dates: start: 20141223

REACTIONS (2)
  - Orthostatic hypotension [Recovered/Resolved]
  - Malaise [Recovered/Resolved]

NARRATIVE: CASE EVENT DATE: 20141222
